FAERS Safety Report 12781926 (Version 2)
Quarter: 2016Q4

REPORT INFORMATION
  Report Type: Report from Study
  Country: IT (occurrence: IT)
  Receive Date: 20160926
  Receipt Date: 20161017
  Transmission Date: 20170207
  Serious: Yes (Hospitalization, Other)
  Sender: FDA-Public Use
  Company Number: IT-BRISTOL-MYERS SQUIBB COMPANY-BMS-2016-077599

PATIENT
  Age: 78 Year
  Sex: Male

DRUGS (15)
  1. NIVOLUMAB [Suspect]
     Active Substance: NIVOLUMAB
     Dosage: 225 MG, UNK
     Route: 065
     Dates: start: 20160804
  2. NIVOLUMAB [Suspect]
     Active Substance: NIVOLUMAB
     Dosage: 225 MG, UNK
     Route: 065
     Dates: start: 20160819
  3. NIVOLUMAB [Suspect]
     Active Substance: NIVOLUMAB
     Dosage: 240 MG, UNK
     Route: 065
     Dates: start: 20160609
  4. NIVOLUMAB [Suspect]
     Active Substance: NIVOLUMAB
     Dosage: 250 MG, UNK
     Route: 065
     Dates: start: 20160225
  5. NIVOLUMAB [Suspect]
     Active Substance: NIVOLUMAB
     Dosage: 250 MG, UNK
     Route: 065
     Dates: start: 20160316
  6. NIVOLUMAB [Suspect]
     Active Substance: NIVOLUMAB
     Dosage: 240 MG, UNK
     Route: 065
     Dates: start: 20160512
  7. NIVOLUMAB [Suspect]
     Active Substance: NIVOLUMAB
     Dosage: 240 MG, UNK
     Route: 065
     Dates: start: 20160526
  8. NIVOLUMAB [Suspect]
     Active Substance: NIVOLUMAB
     Dosage: 240 MG, UNK
     Route: 065
     Dates: start: 20160623
  9. NIVOLUMAB [Suspect]
     Active Substance: NIVOLUMAB
     Dosage: 240 MG, UNK
     Route: 065
     Dates: start: 20160427
  10. NIVOLUMAB [Suspect]
     Active Substance: NIVOLUMAB
     Dosage: 225 MG, UNK
     Route: 065
     Dates: start: 20160902
  11. NIVOLUMAB [Suspect]
     Active Substance: NIVOLUMAB
     Dosage: 240 MG, UNK
     Route: 065
     Dates: start: 20160707
  12. NIVOLUMAB [Suspect]
     Active Substance: NIVOLUMAB
     Indication: NON-SMALL CELL LUNG CANCER
     Dosage: 3 MG/KG, UNK
     Route: 042
  13. NIVOLUMAB [Suspect]
     Active Substance: NIVOLUMAB
     Dosage: 250 MG, UNK
     Route: 065
     Dates: start: 20160208
  14. NIVOLUMAB [Suspect]
     Active Substance: NIVOLUMAB
     Dosage: 225 MG, UNK
     Route: 065
     Dates: start: 20160922
  15. NIVOLUMAB [Suspect]
     Active Substance: NIVOLUMAB
     Dosage: 250 MG, UNK
     Route: 065
     Dates: start: 20160413

REACTIONS (6)
  - Dyspnoea exertional [Unknown]
  - Lower limb fracture [Recovered/Resolved]
  - Blood creatinine increased [Unknown]
  - Surgery [Unknown]
  - Fall [Unknown]
  - Duodenal ulcer [Unknown]

NARRATIVE: CASE EVENT DATE: 20160224
